FAERS Safety Report 18372382 (Version 1)
Quarter: 2020Q4

REPORT INFORMATION
  Report Type: Report from Study
  Country: ZA (occurrence: ZA)
  Receive Date: 20201012
  Receipt Date: 20201012
  Transmission Date: 20210114
  Serious: Yes (Hospitalization, Other)
  Sender: FDA-Public Use
  Company Number: NVSC2019ZA087420

PATIENT
  Sex: Male

DRUGS (1)
  1. ENTRESTO [Suspect]
     Active Substance: SACUBITRIL\VALSARTAN
     Indication: CARDIAC FAILURE
     Dosage: 50 MG, BID
     Route: 048
     Dates: start: 20190702, end: 20190711

REACTIONS (5)
  - Hypotension [Unknown]
  - Dyspnoea exertional [Unknown]
  - Ejection fraction decreased [Unknown]
  - Fatigue [Unknown]
  - Cardiac failure [Unknown]
